FAERS Safety Report 9154050 (Version 1)
Quarter: 2013Q1

REPORT INFORMATION
  Report Type: Spontaneous
  Country: US (occurrence: US)
  Receive Date: 20130311
  Receipt Date: 20130311
  Transmission Date: 20140127
  Serious: No
  Sender: FDA-Public Use
  Company Number: US-PFIZER INC-2013082034

PATIENT
  Age: 84 Year
  Sex: Female
  Weight: 51.2 kg

DRUGS (4)
  1. LYRICA [Suspect]
     Indication: NEUROPATHY PERIPHERAL
     Dosage: 75 MG, 2X/DAY
     Dates: start: 20130304
  2. LYRICA [Suspect]
     Indication: PLANTAR FASCIITIS
     Dosage: 75 MG, 1X/DAY
     Dates: start: 201303
  3. ESTROVEN [Concomitant]
     Indication: HOT FLUSH
     Dosage: UNK
  4. IRON [Concomitant]
     Indication: BLOOD IRON DECREASED
     Dosage: UNK

REACTIONS (3)
  - Dizziness [Unknown]
  - Nausea [Unknown]
  - Somnolence [Unknown]
